FAERS Safety Report 8025307-0 (Version None)
Quarter: 2012Q1

REPORT INFORMATION
  Report Type: 
  Country: None (occurrence: None)
  Receive Date: 20120105
  Receipt Date: 20111230
  Transmission Date: 20120608
  Serious: Yes (Other)
  Sender: FDA-Public Use
  Company Number: US-ABBOTT-12P-163-0888410-00

PATIENT
  Sex: Male

DRUGS (1)
  1. HUMIRA [Suspect]
     Indication: PRODUCT USED FOR UNKNOWN INDICATION
     Route: 058
     Dates: start: 20100101, end: 20100101

REACTIONS (6)
  - EJECTION FRACTION DECREASED [None]
  - CARDIAC DISORDER [None]
  - FEELING ABNORMAL [None]
  - AFFECT LABILITY [None]
  - VENTRICULAR DYSFUNCTION [None]
  - CARDIOMEGALY [None]
